FAERS Safety Report 9506509 (Version 1)
Quarter: 2013Q3

REPORT INFORMATION
  Report Type: Report from Study
  Country: AR (occurrence: AR)
  Receive Date: 20130906
  Receipt Date: 20130906
  Transmission Date: 20140515
  Serious: Yes (Hospitalization)
  Sender: FDA-Public Use
  Company Number: PHHY2013AR098166

PATIENT
  Sex: Male

DRUGS (1)
  1. DIOVAN [Suspect]
     Indication: HYPERTENSION
     Dosage: 0.5 DF (80 MG), DAILY
     Route: 048

REACTIONS (3)
  - Peripheral vascular disorder [Recovering/Resolving]
  - Pain in extremity [Recovering/Resolving]
  - Wrong technique in drug usage process [Unknown]
